FAERS Safety Report 7674357-2 (Version None)
Quarter: 2011Q3

REPORT INFORMATION
  Report Type: 
  Country: None (occurrence: None)
  Receive Date: 20110810
  Receipt Date: 20110803
  Transmission Date: 20111222
  Serious: Yes (Other)
  Sender: FDA-Public Use
  Company Number: JP-PFIZER INC-2011178710

PATIENT
  Age: 51 Year
  Sex: Male

DRUGS (5)
  1. ISOTONIC SOLUTIONS [Concomitant]
     Dosage: 200 ML/DAY
     Route: 041
     Dates: start: 20110621, end: 20110713
  2. AMINO ACIDS/ELECTROLYTES/GLUCOSE/VITAMINS [Concomitant]
     Indication: FLUID REPLACEMENT
     Dosage: 500 ML/DAY
     Route: 041
     Dates: start: 20110704, end: 20110704
  3. ZOSYN [Suspect]
     Indication: SKIN INFECTION
     Dosage: 4.5 G, 2X/DAY
     Route: 042
     Dates: start: 20110621, end: 20110713
  4. VEEN D [Concomitant]
     Indication: FLUID REPLACEMENT
     Dosage: 500 ML/DAY
     Route: 041
     Dates: start: 20110704, end: 20110704
  5. ZOSYN [Suspect]
     Indication: SEPSIS

REACTIONS (3)
  - LIVER DISORDER [None]
  - ARTHRALGIA [None]
  - ANGIOPATHY [None]
